FAERS Safety Report 19653916 (Version 2)
Quarter: 2021Q3

REPORT INFORMATION
  Report Type: Spontaneous
  Country: US (occurrence: US)
  Receive Date: 20210803
  Receipt Date: 20210826
  Transmission Date: 20211014
  Serious: No
  Sender: FDA-Public Use
  Company Number: US-VERTEX PHARMACEUTICALS-2021-011411

PATIENT
  Age: 37 Year
  Sex: Male
  Weight: 77 kg

DRUGS (7)
  1. DOXYCYCLINE HYCLATE. [Concomitant]
     Active Substance: DOXYCYCLINE HYCLATE
  2. PULMOZYME [Concomitant]
     Active Substance: DORNASE ALFA
     Dosage: UNK, PRN
  3. TRIKAFTA [Suspect]
     Active Substance: ELEXACAFTOR\IVACAFTOR\TEZACAFTOR
     Indication: CYSTIC FIBROSIS
     Dosage: 2 ORANGE TABS AM; 1 BLUE TAB PM
     Route: 048
     Dates: start: 202001
  4. OMEGA 3,6,9 [Concomitant]
     Dosage: 1200 MG
  5. ALBUTEROL [SALBUTAMOL] [Concomitant]
     Active Substance: ALBUTEROL
  6. IPRATROPIUM/ALBUTEROL [Concomitant]
     Active Substance: ALBUTEROL\IPRATROPIUM
  7. L?THEANINE [Concomitant]
     Active Substance: DIETARY SUPPLEMENT

REACTIONS (3)
  - Sinus disorder [Unknown]
  - Feeling abnormal [Not Recovered/Not Resolved]
  - Rhinorrhoea [Unknown]

NARRATIVE: CASE EVENT DATE: 20210723
